FAERS Safety Report 8273024-4 (Version None)
Quarter: 2012Q2

REPORT INFORMATION
  Report Type: 
  Country: None (occurrence: None)
  Receive Date: 20120411
  Receipt Date: 20120404
  Transmission Date: 20120825
  Serious: No
  Sender: FDA-Public Use
  Company Number: US-PFIZER INC-2012033317

PATIENT
  Sex: Female
  Weight: 83.447 kg

DRUGS (5)
  1. ASPIRIN [Suspect]
     Dosage: UNK
  2. PENICILLIN [Suspect]
     Dosage: UNK
  3. PERCOCET [Suspect]
     Dosage: UNK
  4. NEOSPORIN [Suspect]
     Dosage: UNK
  5. PERCODAN-DEMI [Suspect]
     Dosage: UNK

REACTIONS (1)
  - DRUG HYPERSENSITIVITY [None]
